FAERS Safety Report 16652114 (Version 1)
Quarter: 2019Q3

REPORT INFORMATION
  Report Type: Spontaneous
  Country: CN (occurrence: CN)
  Receive Date: 20190731
  Receipt Date: 20190731
  Transmission Date: 20191004
  Serious: Yes (Other)
  Sender: FDA-Public Use
  Company Number: CN-ASTRAZENECA-2019SF07573

PATIENT
  Age: 52 Year
  Sex: Male
  Weight: 65 kg

DRUGS (2)
  1. TICAGRELOR. [Suspect]
     Active Substance: TICAGRELOR
     Indication: PLATELET AGGREGATION ABNORMAL
     Route: 048
     Dates: start: 20190624, end: 20190628
  2. ATORVASTATIN [Concomitant]
     Active Substance: ATORVASTATIN
     Indication: ADMINISTRATION SITE PLAQUE
     Dosage: 1 TABLET A DAY
     Dates: start: 20190624, end: 20190629

REACTIONS (10)
  - Subdural haematoma [Unknown]
  - Headache [Recovered/Resolved]
  - Neck pain [Unknown]
  - Chest discomfort [Unknown]
  - Arrhythmia [Unknown]
  - Palpitations [Unknown]
  - Subarachnoid haemorrhage [Recovering/Resolving]
  - Myocardial ischaemia [Unknown]
  - Syncope [Unknown]
  - Dizziness [Unknown]

NARRATIVE: CASE EVENT DATE: 20190628
